FAERS Safety Report 5191352-6 (Version None)
Quarter: 2006Q4

REPORT INFORMATION
  Report Type: 
  Country: None (occurrence: None)
  Receive Date: 20061226
  Receipt Date: 20061019
  Transmission Date: 20070319
  Serious: Yes (Hospitalization)
  Sender: FDA-Public Use
  Company Number: JP-ROCHE-468329

PATIENT
  Age: 60 Year
  Sex: Female
  Weight: 72 kg

DRUGS (10)
  1. PEGASYS [Suspect]
     Indication: HEPATITIS C
     Route: 058
     Dates: start: 20060713, end: 20060924
  2. ALLOPURINOL [Suspect]
     Indication: HYPERURICAEMIA
     Route: 048
     Dates: start: 20060824, end: 20060928
  3. ALLOPURINOL [Suspect]
     Route: 048
  4. TAGAMET [Concomitant]
     Route: 048
  5. PERSANTIN [Concomitant]
     Route: 048
  6. PREDNISOLONE [Concomitant]
     Route: 048
  7. ALOSENN [Concomitant]
     Route: 048
  8. URSO [Concomitant]
     Route: 048
  9. LENDORMIN [Concomitant]
     Dosage: DRUG REPORTED AS ^LENDORMIN D^
     Route: 048
  10. DIOVAN [Concomitant]
     Route: 048

REACTIONS (1)
  - PURPURA [None]
